FAERS Safety Report 4699715-X (Version None)
Quarter: 2005Q2

REPORT INFORMATION
  Report Type: 
  Country: None (occurrence: None)
  Receive Date: 20050623
  Receipt Date: 20050601
  Transmission Date: 20051028
  Serious: Yes (Disabling)
  Sender: FDA-Public Use
  Company Number: SP00447

PATIENT
  Age: 33 Year
  Sex: Female

DRUGS (2)
  1. COLAZAL [Suspect]
     Indication: CROHN'S DISEASE
     Dosage: 2.25 G/TID
     Dates: start: 20041125, end: 20050214
  2. PREDNISOLONE [Concomitant]

REACTIONS (2)
  - FATIGUE [None]
  - LETHARGY [None]
